FAERS Safety Report 14136711 (Version 1)
Quarter: 2017Q4

REPORT INFORMATION
  Report Type: Spontaneous
  Country: US (occurrence: None)
  Receive Date: 20171027
  Receipt Date: 20171027
  Transmission Date: 20180321
  Serious: Yes (Other)
  Sender: FDA-Public Use
  Company Number: None

PATIENT
  Age: 78 Year
  Sex: Female
  Weight: 64.41 kg

DRUGS (19)
  1. CELESTONE SOLUSPAN [Suspect]
     Active Substance: BETAMETHASONE ACETATE\BETAMETHASONE SODIUM PHOSPHATE
     Indication: SPINAL COLUMN STENOSIS
     Dosage: QUANTITY:/ {WE}: T/OP;1 ML (6 MG/ML)?
     Dates: start: 20170707, end: 20170707
  2. VITAMIN C [Concomitant]
     Active Substance: ASCORBIC ACID
  3. MAGNESIUM GLYCINATE [Concomitant]
     Active Substance: MAGNESIUM GLYCINATE
  4. AMLODIPINE BESYLATE. [Concomitant]
     Active Substance: AMLODIPINE BESYLATE
  5. LOSARTAN. [Concomitant]
     Active Substance: LOSARTAN
  6. ATORVASTATIN [Concomitant]
     Active Substance: ATORVASTATIN
  7. VITAMIN D3 [Concomitant]
     Active Substance: CHOLECALCIFEROL
  8. CELESTONE SOLUSPAN [Suspect]
     Active Substance: BETAMETHASONE ACETATE\BETAMETHASONE SODIUM PHOSPHATE
     Indication: SURGERY
     Dosage: QUANTITY:/ {WE}: T/OP;1 ML (6 MG/ML)?
     Dates: start: 20170707, end: 20170707
  9. GABAPENTIN. [Concomitant]
     Active Substance: GABAPENTIN
  10. CALCIUM CITRATE [Concomitant]
     Active Substance: CALCIUM CITRATE
  11. CELESTONE SOLUSPAN [Suspect]
     Active Substance: BETAMETHASONE ACETATE\BETAMETHASONE SODIUM PHOSPHATE
     Indication: PAIN IN EXTREMITY
     Dosage: QUANTITY:/ {WE}: T/OP;1 ML (6 MG/ML)?
     Dates: start: 20170707, end: 20170707
  12. CELESTONE SOLUSPAN [Suspect]
     Active Substance: BETAMETHASONE ACETATE\BETAMETHASONE SODIUM PHOSPHATE
     Indication: HYPOAESTHESIA
     Dosage: QUANTITY:/ {WE}: T/OP;1 ML (6 MG/ML)?
     Dates: start: 20170707, end: 20170707
  13. CALCITONIN SALMON (SPRAY) [Concomitant]
  14. ASPIRIN. [Concomitant]
     Active Substance: ASPIRIN
  15. GLUCO/EHON [Concomitant]
  16. C-PAP [Concomitant]
  17. NEXIUM [Concomitant]
     Active Substance: ESOMEPRAZOLE MAGNESIUM
  18. FLUTICASONE PROPRIONATE [Concomitant]
     Active Substance: FLUTICASONE PROPIONATE
  19. FLAX OIL [Concomitant]

REACTIONS (11)
  - Glucose tolerance impaired [None]
  - Nausea [None]
  - Dyspnoea [None]
  - Cold sweat [None]
  - Fatigue [None]
  - Oedema peripheral [None]
  - Vascular rupture [None]
  - Musculoskeletal chest pain [None]
  - Hypertension [None]
  - Blood glucose increased [None]
  - Rash [None]

NARRATIVE: CASE EVENT DATE: 20170717
